FAERS Safety Report 6391468-2 (Version None)
Quarter: 2009Q4

REPORT INFORMATION
  Report Type: 
  Country: None (occurrence: None)
  Receive Date: 20091006
  Receipt Date: 20091006
  Transmission Date: 20100525
  Serious: Yes (Death)
  Sender: FDA-Public Use
  Company Number: None

PATIENT
  Age: 59 Year
  Sex: Female
  Weight: 63.9572 kg

DRUGS (2)
  1. SERTRALINE HCL [Suspect]
     Indication: DEPRESSION
     Dosage: 50MG ONCE PO
     Route: 048
     Dates: start: 20090928, end: 20090928
  2. LINEZOLID [Suspect]
     Dosage: 600MG Q 12 IV TO PO IV
     Route: 042
     Dates: start: 20090918, end: 20090927

REACTIONS (7)
  - ABDOMINAL DISTENSION [None]
  - CELLULITIS [None]
  - DEPRESSION [None]
  - PSYCHOTIC DISORDER [None]
  - SEPSIS [None]
  - SEROTONIN SYNDROME [None]
  - TORSADE DE POINTES [None]
